FAERS Safety Report 5170587-2 (Version None)
Quarter: 2006Q4

REPORT INFORMATION
  Report Type: 
  Country: None (occurrence: None)
  Receive Date: 20061205
  Receipt Date: 20061121
  Transmission Date: 20070319
  Serious: Yes (Hospitalization)
  Sender: FDA-Public Use
  Company Number: A040342

PATIENT
  Age: 1 Day
  Weight: 1.5 kg

DRUGS (7)
  1. HYDROXYZINE HCL [Suspect]
     Indication: ANXIETY
     Dosage: 125 MG
  2. CLOMIPRAMINE HCL [Suspect]
     Indication: ANXIETY
     Dosage: 75 MG (DAILY)
  3. OXAZEPAM [Suspect]
     Indication: ANXIETY
     Dosage: 10 MG (PRN)
  4. SPASFON (PHLOROGLUCINOL, TRIMETHYLPHLOROGLUCINOL) [Concomitant]
  5. NICARDIPINE HYDROCHLORIDE [Concomitant]
  6. CORTICOSTEROIDS (CORTICOSTEROIDS) [Concomitant]
  7. AMOXICILLIN [Concomitant]

REACTIONS (10)
  - AMNIORRHOEA [None]
  - DRUG EXPOSURE DURING PREGNANCY [None]
  - ELECTROENCEPHALOGRAM ABNORMAL [None]
  - EXTRAPYRAMIDAL DISORDER [None]
  - HYPOKINESIA NEONATAL [None]
  - HYPOTONIA NEONATAL [None]
  - JAUNDICE NEONATAL [None]
  - NEONATAL DISORDER [None]
  - NEONATAL RESPIRATORY DISTRESS SYNDROME [None]
  - PREMATURE BABY [None]
